FAERS Safety Report 16693986 (Version 1)
Quarter: 2019Q3

REPORT INFORMATION
  Report Type: Spontaneous
  Country: US (occurrence: US)
  Receive Date: 20190812
  Receipt Date: 20190812
  Transmission Date: 20191004
  Serious: No
  Sender: FDA-Public Use
  Company Number: US-SA-2019SA217445

PATIENT
  Age: 64 Year
  Sex: Female

DRUGS (1)
  1. LANTUS SOLOSTAR [Suspect]
     Active Substance: INSULIN GLARGINE
     Indication: TYPE 2 DIABETES MELLITUS
     Dosage: TITRATING UP TO 80-120 UNITS QHS
     Route: 065
     Dates: start: 20190731

REACTIONS (5)
  - Blood glucose increased [Recovering/Resolving]
  - Hyperhidrosis [Unknown]
  - Chills [Unknown]
  - Fear [Unknown]
  - Visual impairment [Unknown]
